FAERS Safety Report 4965100-6 (Version None)
Quarter: 2006Q2

REPORT INFORMATION
  Report Type: 
  Country: None (occurrence: None)
  Receive Date: 20060406
  Receipt Date: 20050713
  Transmission Date: 20061013
  Serious: Yes (Other)
  Sender: FDA-Public Use
  Company Number: PHBS2005JP10010

PATIENT
  Age: 32 Year
  Sex: Male

DRUGS (7)
  1. LITHIUM CARBONATE [Concomitant]
     Indication: BIPOLAR I DISORDER
     Dosage: 600 MG/DAY
     Route: 065
  2. VALPROATE SODIUM [Concomitant]
     Indication: BIPOLAR I DISORDER
     Dosage: 400 MG/DAY
     Route: 065
  3. PAXIL [Concomitant]
     Indication: BIPOLAR I DISORDER
     Dosage: 40 MG/DAY
     Route: 065
  4. DIAZEPAM [Concomitant]
     Indication: BIPOLAR I DISORDER
     Dosage: 15 MG/DAY
     Route: 065
  5. ZOTEPINE [Concomitant]
     Indication: BIPOLAR I DISORDER
     Dosage: 100 MG/DAY
     Route: 065
  6. ZOTEPINE [Concomitant]
     Dosage: 300 MG/DAY
     Route: 065
  7. CARBAMAZEPINE [Suspect]
     Indication: BIPOLAR I DISORDER
     Dosage: 400 MG/DAY
     Route: 065

REACTIONS (1)
  - TOXIC INDUCED ENCEPHALOPATHY [None]
